FAERS Safety Report 8876923 (Version 1)
Quarter: 2012Q4

REPORT INFORMATION
  Report Type: 
  Country: US (occurrence: US)
  Receive Date: 20121029
  Receipt Date: 20121029
  Transmission Date: 20130627
  Serious: Yes (Hospitalization)
  Sender: FDA-Public Use
  Company Number: US-VERTEX PHARMACEUTICAL INC.-2012-023630

PATIENT
  Sex: Male
  Weight: 91 kg

DRUGS (9)
  1. INCIVEK [Suspect]
     Indication: HEPATITIS C
     Dosage: 750 mg, tid
     Route: 048
     Dates: start: 20120524
  2. PEGASYS [Suspect]
     Indication: HEPATITIS C
     Dosage: 135 ?g, weekly
     Route: 058
     Dates: start: 20120524
  3. PEGASYS [Suspect]
     Dosage: 135 ?g, weekly
     Route: 058
  4. RIBAVIRIN [Concomitant]
     Indication: HEPATITIS C
     Dosage: 200 mg, qd
     Route: 048
     Dates: start: 20120524
  5. RIBAVIRIN [Concomitant]
     Dosage: 200 mg, qd
     Route: 048
  6. CYCLOSPORINE [Suspect]
     Indication: TRANSPLANT
  7. METOPROLOL [Concomitant]
     Indication: HYPERTENSION
  8. EFFEXOR [Concomitant]
     Indication: ANXIETY
  9. TRICOR                             /00499301/ [Concomitant]

REACTIONS (2)
  - Pancreatitis [Recovered/Resolved]
  - Off label use [Unknown]
